FAERS Safety Report 9151398 (Version 3)
Quarter: 2013Q2

REPORT INFORMATION
  Report Type: Spontaneous
  Country: US (occurrence: US)
  Receive Date: 20130308
  Receipt Date: 20130508
  Transmission Date: 20140414
  Serious: Yes (Death, Hospitalization)
  Sender: FDA-Public Use
  Company Number: US-ASTELLAS-2013US002521

PATIENT
  Age: 62 Year
  Sex: Male

DRUGS (2)
  1. XTANDI [Suspect]
     Indication: PROSTATE CANCER
     Dosage: 160 MG, UID/QD
     Route: 048
     Dates: start: 20130202
  2. XTANDI [Suspect]
     Dosage: 160 MG, UID/QD
     Route: 048
     Dates: start: 20130410

REACTIONS (8)
  - Death [Fatal]
  - Hospitalisation [Unknown]
  - Peptic ulcer haemorrhage [Unknown]
  - Red blood cell count decreased [Unknown]
  - Syncope [Unknown]
  - Dizziness [Unknown]
  - Vertigo [Unknown]
  - Fatigue [Unknown]
